FAERS Safety Report 6542503-X (Version None)
Quarter: 2010Q1

REPORT INFORMATION
  Report Type: 
  Country: None (occurrence: None)
  Receive Date: 20100119
  Receipt Date: 20100112
  Transmission Date: 20100710
  Serious: Yes (Hospitalization)
  Sender: FDA-Public Use
  Company Number: US-GENENTECH-296199

PATIENT
  Sex: Female
  Weight: 28 kg

DRUGS (1)
  1. ACTIVASE [Suspect]
     Indication: MEDICAL DEVICE COMPLICATION
     Dosage: 1.7 MG, ^M,W,F^
     Route: 050
     Dates: start: 20091127, end: 20091228

REACTIONS (1)
  - HYPERPHOSPHATAEMIA [None]
